FAERS Safety Report 14315202 (Version 1)
Quarter: 2017Q4

REPORT INFORMATION
  Report Type: Spontaneous
  Country: DE (occurrence: DE)
  Receive Date: 20171221
  Receipt Date: 20171221
  Transmission Date: 20180321
  Serious: Yes (Other)
  Sender: FDA-Public Use
  Company Number: DE-SA-2017SA250979

PATIENT
  Age: 42 Year
  Sex: Female

DRUGS (3)
  1. LEMTRADA [Suspect]
     Active Substance: ALEMTUZUMAB
     Route: 041
     Dates: start: 20160411, end: 20160415
  2. GILENYA [Suspect]
     Active Substance: FINGOLIMOD HYDROCHLORIDE
     Indication: MULTIPLE SCLEROSIS
     Route: 048
  3. GILENYA [Suspect]
     Active Substance: FINGOLIMOD HYDROCHLORIDE
     Indication: MULTIPLE SCLEROSIS
     Route: 048
     Dates: start: 20140527, end: 20151001

REACTIONS (12)
  - High density lipoprotein increased [Unknown]
  - Rash [Recovered/Resolved]
  - White blood cell count increased [Unknown]
  - Lymphopenia [Recovered/Resolved]
  - Leukopenia [Unknown]
  - Upper respiratory tract infection [Recovered/Resolved]
  - Oral herpes [Recovered/Resolved]
  - Upper respiratory tract infection [Recovered/Resolved]
  - Blood cholesterol increased [Unknown]
  - Leukopenia [Recovered/Resolved]
  - Vitamin D deficiency [Unknown]
  - Tinea pedis [Recovered/Resolved]

NARRATIVE: CASE EVENT DATE: 20140820
